FAERS Safety Report 24277017 (Version 1)
Quarter: 2024Q3

REPORT INFORMATION
  Report Type: Spontaneous
  Country: US (occurrence: US)
  Receive Date: 20240903
  Receipt Date: 20240903
  Transmission Date: 20241017
  Serious: No
  Sender: VIFOR
  Company Number: US-Vifor (International) Inc.-VIT-2024-07441

PATIENT
  Age: 67 Year
  Sex: Female

DRUGS (2)
  1. MIRCERA [Suspect]
     Active Substance: METHOXY POLYETHYLENE GLYCOL-EPOETIN BETA
     Indication: Product used for unknown indication
  2. MIRCERA [Suspect]
     Active Substance: METHOXY POLYETHYLENE GLYCOL-EPOETIN BETA
     Dosage: MIRCERA DOSE NUMBER: 22, DOSE CATEGORY: DOSE 21-30 PLUS
     Dates: start: 20240628

REACTIONS (2)
  - Drug hypersensitivity [Recovered/Resolved]
  - Dyspnoea [Recovered/Resolved]

NARRATIVE: CASE EVENT DATE: 20240628
